FAERS Safety Report 23377372 (Version 8)
Quarter: 2024Q4

REPORT INFORMATION
  Report Type: Report from Study
  Country: US (occurrence: US)
  Receive Date: 20240108
  Receipt Date: 20241104
  Transmission Date: 20250114
  Serious: Yes (Other)
  Sender: NOVARTIS
  Company Number: US-002147023-NVSC2024US000850

PATIENT
  Age: 58 Year
  Sex: Female

DRUGS (2)
  1. KESIMPTA [Suspect]
     Active Substance: OFATUMUMAB
     Indication: Multiple sclerosis
     Dosage: 20 MG, QMO
     Route: 058
     Dates: start: 20231214
  2. KESIMPTA [Suspect]
     Active Substance: OFATUMUMAB
     Indication: Relapsing-remitting multiple sclerosis
     Dosage: 2MG (0.4 ML)
     Route: 058
     Dates: start: 202312

REACTIONS (8)
  - Syncope [Recovered/Resolved]
  - Syncope [Unknown]
  - Muscular weakness [Not Recovered/Not Resolved]
  - Dry skin [Unknown]
  - Rash [Unknown]
  - Joint instability [Unknown]
  - Feeling hot [Unknown]
  - Movement disorder [Unknown]

NARRATIVE: CASE EVENT DATE: 20231219
